FAERS Safety Report 4593415-2 (Version None)
Quarter: 2005Q1

REPORT INFORMATION
  Report Type: 
  Country: None (occurrence: None)
  Receive Date: 20050224
  Receipt Date: 20040610
  Transmission Date: 20050727
  Serious: No
  Sender: FDA-Public Use
  Company Number: US-BRISTOL-MYERS SQUIBB COMPANY-12620688

PATIENT
  Age: 26 Year
  Sex: Female
  Weight: 62 kg

DRUGS (1)
  1. EXCEDRIN (MIGRAINE) [Suspect]
     Indication: MIGRAINE
     Route: 048
     Dates: start: 20040609, end: 20040609

REACTIONS (5)
  - DIZZINESS [None]
  - EUPHORIC MOOD [None]
  - MEDICATION ERROR [None]
  - NAUSEA [None]
  - STOMACH DISCOMFORT [None]
